FAERS Safety Report 5615663-2 (Version None)
Quarter: 2008Q1

REPORT INFORMATION
  Report Type: 
  Country: None (occurrence: None)
  Receive Date: 20080206
  Receipt Date: 20080201
  Transmission Date: 20080703
  Serious: Yes (Death, Hospitalization)
  Sender: FDA-Public Use
  Company Number: JP-AVENTIS-200713422JP

PATIENT
  Age: 80 Year
  Sex: Male
  Weight: 55 kg

DRUGS (8)
  1. ALLEGRA [Suspect]
     Indication: PRURITUS
     Route: 048
     Dates: start: 20071105, end: 20071111
  2. ALLEGRA [Suspect]
     Route: 048
     Dates: start: 20071112, end: 20071121
  3. ALLEGRA [Suspect]
     Route: 048
     Dates: start: 20071122, end: 20071207
  4. ALFAROL [Concomitant]
     Route: 048
     Dates: start: 20030109, end: 20071209
  5. ASPIRIN [Concomitant]
     Route: 048
     Dates: start: 20040120, end: 20071209
  6. TAKEPRON [Concomitant]
     Indication: GASTRITIS
     Route: 048
     Dates: start: 20050418, end: 20071209
  7. CALTAN [Concomitant]
     Route: 048
     Dates: start: 20030417, end: 20071209
  8. DEPAS [Concomitant]
     Indication: INSOMNIA
     Route: 048
     Dates: start: 20070122, end: 20071128

REACTIONS (3)
  - CARDIAC FAILURE [None]
  - JAUNDICE [None]
  - RENAL FAILURE [None]
